FAERS Safety Report 8165279 (Version 3)
Quarter: 2014Q1

REPORT INFORMATION
  Report Type: Spontaneous
  Country: US (occurrence: US)
  Receive Date: 20111003
  Receipt Date: 20140114
  Transmission Date: 20141002
  Serious: Yes (Hospitalization)
  Sender: FDA-Public Use
  Company Number: US-BAYER-2011-089569

PATIENT
  Age: 37 Year
  Sex: Female
  Weight: 108.84 kg

DRUGS (2)
  1. YASMIN [Suspect]
     Indication: CONTRACEPTION
     Dosage: UNK
     Dates: start: 200701, end: 200706
  2. SYNTHROID [Concomitant]
     Indication: THYROIDECTOMY
     Dosage: 0.2 MG ,DAILY,  UNK
     Dates: start: 1992

REACTIONS (5)
  - Cholecystectomy [None]
  - Cholecystitis acute [None]
  - Injury [None]
  - Pain [None]
  - Emotional distress [None]
